FAERS Safety Report 18849368 (Version 3)
Quarter: 2021Q1

REPORT INFORMATION
  Report Type: Report from Study
  Country: US (occurrence: US)
  Receive Date: 20210205
  Receipt Date: 20210318
  Transmission Date: 20210419
  Serious: Yes (Other)
  Sender: FDA-Public Use
  Company Number: NVSC2021US024718

PATIENT
  Sex: Female

DRUGS (1)
  1. KISQALI [Suspect]
     Active Substance: RIBOCICLIB
     Indication: PRODUCT USED FOR UNKNOWN INDICATION
     Dosage: UNK (2/16)
     Route: 048

REACTIONS (11)
  - Bone pain [Unknown]
  - Memory impairment [Unknown]
  - Asthma [Unknown]
  - Wheezing [Recovering/Resolving]
  - Arthralgia [Unknown]
  - Product dose omission issue [Unknown]
  - Asthenia [Unknown]
  - Pulmonary fibrosis [Unknown]
  - Cough [Recovering/Resolving]
  - Headache [Recovered/Resolved]
  - Respiratory disorder [Unknown]
